FAERS Safety Report 4407375-8 (Version None)
Quarter: 2004Q3

REPORT INFORMATION
  Report Type: 
  Country: None (occurrence: None)
  Receive Date: 20040721
  Receipt Date: 20040713
  Transmission Date: 20050211
  Serious: Yes (Death, Hospitalization)
  Sender: FDA-Public Use
  Company Number: 163-20785-04030642 (1)

PATIENT
  Age: 76 Year
  Sex: Female

DRUGS (2)
  1. THALOMID [Suspect]
     Indication: METASTASES TO LUNG
     Dosage: 300 MG, QHS, ORAL
     Route: 048
     Dates: start: 20030501, end: 20040301
  2. THALOMID [Suspect]
     Indication: RENAL CELL CARCINOMA STAGE UNSPECIFIED
     Dosage: 300 MG, QHS, ORAL
     Route: 048
     Dates: start: 20030501, end: 20040301

REACTIONS (2)
  - CEREBROVASCULAR ACCIDENT [None]
  - RENAL FAILURE CHRONIC [None]
